FAERS Safety Report 6709954-1 (Version None)
Quarter: 2010Q2

REPORT INFORMATION
  Report Type: 
  Country: None (occurrence: None)
  Receive Date: 20100503
  Receipt Date: 20100503
  Transmission Date: 20101027
  Serious: Yes (Hospitalization)
  Sender: FDA-Public Use
  Company Number: None

PATIENT
  Age: 14 Month
  Sex: Male
  Weight: 10.8863 kg

DRUGS (1)
  1. CHILDREN'S MOTRIN [Suspect]
     Indication: VIRAL INFECTION
     Dosage: 6 HOURS AS NEEDED PO
     Route: 048
     Dates: start: 20100310, end: 20100425

REACTIONS (1)
  - SKIN DISCOLOURATION [None]
